FAERS Safety Report 25090502 (Version 2)
Quarter: 2025Q2

REPORT INFORMATION
  Report Type: Spontaneous
  Country: US (occurrence: US)
  Receive Date: 20250318
  Receipt Date: 20250508
  Transmission Date: 20250717
  Serious: No
  Sender: PFIZER
  Company Number: US-PFIZER INC-202500059424

PATIENT
  Age: 22 Year
  Sex: Female

DRUGS (1)
  1. EUCRISA [Suspect]
     Active Substance: CRISABOROLE
     Indication: Dermatitis atopic
     Dosage: 1 TUBE, 2X/DAY
     Route: 061
     Dates: start: 20180912, end: 20200512

REACTIONS (1)
  - Drug ineffective [Unknown]
